FAERS Safety Report 17779504 (Version 2)
Quarter: 2020Q2

REPORT INFORMATION
  Report Type: Spontaneous
  Country: US (occurrence: US)
  Receive Date: 20200513
  Receipt Date: 20200619
  Transmission Date: 20200714
  Serious: No
  Sender: FDA-Public Use
  Company Number: US-ASTRAZENECA-2020SE51671

PATIENT
  Age: 27763 Day
  Sex: Male
  Weight: 80.3 kg

DRUGS (1)
  1. BYDUREON BCISE [Suspect]
     Active Substance: EXENATIDE
     Indication: TYPE 2 DIABETES MELLITUS
     Route: 058
     Dates: start: 202003

REACTIONS (6)
  - Device issue [Unknown]
  - Injection site bruising [Unknown]
  - Device malfunction [Unknown]
  - Needle issue [Unknown]
  - Blood glucose increased [Unknown]
  - Wrong technique in device usage process [Unknown]

NARRATIVE: CASE EVENT DATE: 20200413
